FAERS Safety Report 4727585-X (Version None)
Quarter: 2005Q3

REPORT INFORMATION
  Report Type: 
  Country: None (occurrence: None)
  Receive Date: 20050728
  Receipt Date: 20050719
  Transmission Date: 20060218
  Serious: Yes (Death, Hospitalization)
  Sender: FDA-Public Use
  Company Number: 200512407FR

PATIENT
  Age: 70 Year
  Sex: Male

DRUGS (10)
  1. TAXOTERE [Suspect]
     Indication: NON-SMALL CELL LUNG CANCER
     Route: 042
     Dates: start: 20050704, end: 20050704
  2. CISPLATIN [Suspect]
     Indication: NON-SMALL CELL LUNG CANCER
     Route: 042
     Dates: start: 20050704, end: 20050705
  3. ONDANSETRON [Concomitant]
     Indication: PROPHYLAXIS OF NAUSEA AND VOMITING
     Route: 048
     Dates: start: 20050705, end: 20050705
  4. PRIMPERAN INJ [Concomitant]
     Indication: PROPHYLAXIS OF NAUSEA AND VOMITING
     Route: 048
     Dates: start: 20050705, end: 20050705
  5. ISOPTIN [Concomitant]
     Indication: HYPERTENSION
     Route: 048
  6. STILNOX [Concomitant]
     Indication: ANXIETY
     Route: 048
  7. MOVICOL [Concomitant]
     Indication: CONSTIPATION
  8. STOMATOLOGICALS, MOUTH PREPARATIONS [Concomitant]
     Indication: MUCOSAL INFLAMMATION
     Route: 048
     Dates: start: 20050705
  9. STOMATOLOGICALS, MOUTH PREPARATIONS [Concomitant]
     Indication: PROPHYLAXIS
     Route: 048
     Dates: start: 20050705
  10. TPN [Concomitant]
     Indication: ANOREXIA
     Dates: start: 20050705

REACTIONS (8)
  - ASTHENIA [None]
  - CARDIAC ARREST [None]
  - DEHYDRATION [None]
  - GASTROINTESTINAL DISORDER [None]
  - HAEMATEMESIS [None]
  - NAUSEA [None]
  - RENAL FAILURE [None]
  - VOMITING [None]
